FAERS Safety Report 17946017 (Version 1)
Quarter: 2020Q2

REPORT INFORMATION
  Report Type: Spontaneous
  Country: US (occurrence: US)
  Receive Date: 20200626
  Receipt Date: 20200626
  Transmission Date: 20200714
  Serious: Yes (Other)
  Sender: FDA-Public Use
  Company Number: US-ROCHE-2627393

PATIENT
  Sex: Female

DRUGS (1)
  1. OCREVUS [Suspect]
     Active Substance: OCRELIZUMAB
     Indication: PRODUCT USED FOR UNKNOWN INDICATION
     Route: 065

REACTIONS (8)
  - Drug ineffective [Unknown]
  - Asthenia [Unknown]
  - B-lymphocyte count decreased [Unknown]
  - Macular degeneration [Unknown]
  - Weight increased [Unknown]
  - Gait disturbance [Unknown]
  - Gait inability [Unknown]
  - Memory impairment [Unknown]
